FAERS Safety Report 16468244 (Version 3)
Quarter: 2020Q2

REPORT INFORMATION
  Report Type: Spontaneous
  Country: FR (occurrence: FR)
  Receive Date: 20190624
  Receipt Date: 20200401
  Transmission Date: 20200713
  Serious: Yes (Other)
  Sender: FDA-Public Use
  Company Number: FR-AMGEN-FRASP2019097169

PATIENT
  Age: 24 Year
  Sex: Female
  Weight: 43 kg

DRUGS (18)
  1. CALCIUM CARBONATE. [Concomitant]
     Active Substance: CALCIUM CARBONATE
     Indication: HYPOPHOSPHATAEMIA
     Dosage: 1.5 GRAM, QD
     Dates: start: 20050615
  2. CINACALCET HCL [Suspect]
     Active Substance: CINACALCET HYDROCHLORIDE
     Dosage: 120 MILLIGRAM, QD
     Route: 065
     Dates: start: 20061206
  3. ALFACALCIDOL [Concomitant]
     Active Substance: ALFACALCIDOL
     Indication: HYPERPARATHYROIDISM SECONDARY
     Dosage: 0.25 UNK, QD
     Dates: start: 20050615
  4. ALFACALCIDOL [Concomitant]
     Active Substance: ALFACALCIDOL
     Dosage: 1 MICROGRAM, QD
     Dates: start: 20050615
  5. ALFACALCIDOL [Concomitant]
     Active Substance: ALFACALCIDOL
     Dosage: 2 MICROGRAM, QD
     Dates: start: 201803
  6. SEVELAMER [Concomitant]
     Active Substance: SEVELAMER
     Dosage: 2400 MILLIGRAM, QD
     Dates: start: 20071206
  7. ALFACALCIDOL [Concomitant]
     Active Substance: ALFACALCIDOL
     Dosage: 4 MICROGRAM, QD
     Dates: start: 20071206
  8. CALCIUM CARBONATE. [Concomitant]
     Active Substance: CALCIUM CARBONATE
     Dosage: 4.5 GRAM, QD
     Dates: start: 20071206
  9. CINACALCET HCL [Suspect]
     Active Substance: CINACALCET HYDROCHLORIDE
     Indication: HYPERPARATHYROIDISM SECONDARY
     Dosage: 30 MILLIGRAM, QD
     Route: 065
     Dates: start: 20060307, end: 20070713
  10. CINACALCET HCL [Suspect]
     Active Substance: CINACALCET HYDROCHLORIDE
     Dosage: 60 MILLIGRAM, QD
     Route: 065
     Dates: start: 20060610
  11. CALCIUM CARBONATE. [Concomitant]
     Active Substance: CALCIUM CARBONATE
     Dosage: 2 GRAM, QD
     Dates: start: 201803
  12. SEVELAMER [Concomitant]
     Active Substance: SEVELAMER
     Indication: HYPOPHOSPHATAEMIA
     Dosage: 3200 MILLIGRAM, QD
     Dates: start: 20051207, end: 20070713
  13. SEVELAMER [Concomitant]
     Active Substance: SEVELAMER
     Dosage: 4800 MILLIGRAM, QD
     Dates: start: 20060307
  14. CALCIUM CARBONATE. [Concomitant]
     Active Substance: CALCIUM CARBONATE
     Dosage: 12 GRAM, QD
     Route: 042
     Dates: start: 2007
  15. CINACALCET HCL [Suspect]
     Active Substance: CINACALCET HYDROCHLORIDE
     Dosage: 90 MILLIGRAM, QD
     Route: 065
     Dates: start: 20060915
  16. CINACALCET HCL [Suspect]
     Active Substance: CINACALCET HYDROCHLORIDE
     Dosage: 150 MILLIGRAM, QD
     Route: 065
     Dates: start: 20070524
  17. ALFACALCIDOL [Concomitant]
     Active Substance: ALFACALCIDOL
     Dosage: 6 MICROGRAM, QD
     Dates: start: 2007
  18. SEVELAMER [Concomitant]
     Active Substance: SEVELAMER
     Dosage: 7200 MILLIGRAM, QD
     Dates: start: 20060610

REACTIONS (4)
  - Renal transplant [Unknown]
  - Oncocytoma [Unknown]
  - Drug ineffective [Recovered/Resolved]
  - Blood parathyroid hormone increased [Recovered/Resolved]

NARRATIVE: CASE EVENT DATE: 20060915
